FAERS Safety Report 6932868-9 (Version None)
Quarter: 2010Q3

REPORT INFORMATION
  Report Type: 
  Country: None (occurrence: None)
  Receive Date: 20100819
  Receipt Date: 20100809
  Transmission Date: 20110219
  Serious: Yes (Other)
  Sender: FDA-Public Use
  Company Number: US-WYE-H16806910

PATIENT
  Sex: Female

DRUGS (11)
  1. EFFEXOR XR [Suspect]
     Dates: start: 19950101, end: 20100101
  2. EFFEXOR XR [Suspect]
     Dosage: ^WEANED OFF^
     Dates: start: 20100101, end: 20100401
  3. EFFEXOR XR [Suspect]
     Dosage: UNKNOWN
     Dates: start: 20100501
  4. HUMALOG [Concomitant]
     Dosage: UNKNOWN
  5. ACETYLSALICYLIC ACID [Concomitant]
     Indication: TRANSIENT ISCHAEMIC ATTACK
     Dates: start: 20100101
  6. LOTREL [Concomitant]
     Indication: HYPERTENSION
     Dosage: UNKNOWN
  7. EVISTA [Concomitant]
     Dosage: UNKNOWN
     Dates: start: 20090101, end: 20100101
  8. AGGRENOX [Concomitant]
     Indication: TRANSIENT ISCHAEMIC ATTACK
     Dosage: 25/200 2X
     Dates: start: 20090401, end: 20100101
  9. LANTUS [Concomitant]
     Dosage: 60 UNIT EVERY 1 DAY
     Dates: start: 19920101, end: 20100101
  10. LANTUS [Concomitant]
     Dosage: 30 UNIT EVERY 1 DAY
     Dates: start: 20100101
  11. CELEBREX [Concomitant]
     Indication: SURGERY
     Dosage: 100 MG
     Dates: start: 19970101

REACTIONS (4)
  - DEPRESSION [None]
  - DRUG WITHDRAWAL SYNDROME [None]
  - FEELING ABNORMAL [None]
  - SUICIDAL IDEATION [None]
